FAERS Safety Report 16009350 (Version 2)
Quarter: 2019Q1

REPORT INFORMATION
  Report Type: Spontaneous
  Country: US (occurrence: US)
  Receive Date: 20190226
  Receipt Date: 20190227
  Transmission Date: 20190418
  Serious: Yes (Death, Other)
  Sender: FDA-Public Use
  Company Number: US-009507513-1504USA009684

PATIENT
  Age: 52 Year
  Sex: Male
  Weight: 89.99 kg

DRUGS (10)
  1. CUBICIN [Suspect]
     Active Substance: DAPTOMYCIN
     Dosage: 4 MILLIGRAM/KILOGRAM, Q48H
     Route: 042
     Dates: start: 20041006, end: 20041008
  2. CUBICIN [Suspect]
     Active Substance: DAPTOMYCIN
     Dosage: 4 MILLIGRAM/KILOGRAM, Q24H
     Route: 042
     Dates: start: 20041009, end: 200410
  3. PROPOFOL. [Concomitant]
     Active Substance: PROPOFOL
     Dosage: UNK UNK, UNK
  4. CUBICIN [Suspect]
     Active Substance: DAPTOMYCIN
     Indication: PERITONEAL ABSCESS
     Dosage: 4 MILLIGRAM/KILOGRAM, Q24H
     Route: 042
     Dates: start: 20041002, end: 20041004
  5. MORPHINE [Concomitant]
     Active Substance: MORPHINE
     Dosage: UNK UNK, UNK
  6. LINEZOLID. [Concomitant]
     Active Substance: LINEZOLID
     Indication: SEPSIS
  7. FENTANYL. [Concomitant]
     Active Substance: FENTANYL
     Dosage: UNK UNK, UNK
  8. LINEZOLID. [Concomitant]
     Active Substance: LINEZOLID
     Indication: PERITONEAL ABSCESS
     Dosage: UNK UNK, UNK
  9. SYNERCID [Concomitant]
     Active Substance: DALFOPRISTIN\QUINUPRISTIN
     Dosage: UNK UNK, UNK
  10. MIDAZOLAM HYDROCHLORIDE. [Concomitant]
     Active Substance: MIDAZOLAM HYDROCHLORIDE
     Dosage: UNK UNK, UNK

REACTIONS (4)
  - Sepsis [Fatal]
  - Disseminated intravascular coagulation [Unknown]
  - Muscle rigidity [Recovered/Resolved]
  - Tremor [Unknown]

NARRATIVE: CASE EVENT DATE: 200410
